FAERS Safety Report 14614472 (Version 1)
Quarter: 2018Q1

REPORT INFORMATION
  Report Type: Spontaneous
  Country: US (occurrence: US)
  Receive Date: 20180308
  Receipt Date: 20180308
  Transmission Date: 20180509
  Serious: No
  Sender: FDA-Public Use
  Company Number: None

PATIENT
  Age: 36 Year
  Sex: Female

DRUGS (2)
  1. LUPRON DEPOT [Suspect]
     Active Substance: LEUPROLIDE ACETATE
     Indication: SURGERY
     Dosage: ?          OTHER FREQUENCY:ONCE A MONTH;?
     Route: 030
  2. LUPRON DEPOT [Suspect]
     Active Substance: LEUPROLIDE ACETATE
     Indication: PAIN
     Dosage: ?          OTHER FREQUENCY:ONCE A MONTH;?
     Route: 030

REACTIONS (3)
  - Headache [None]
  - Hot flush [None]
  - Cold sweat [None]

NARRATIVE: CASE EVENT DATE: 20180201
